FAERS Safety Report 7407686-8 (Version None)
Quarter: 2011Q2

REPORT INFORMATION
  Report Type: 
  Country: None (occurrence: None)
  Receive Date: 20110412
  Receipt Date: 20101228
  Transmission Date: 20111010
  Serious: Yes (Death, Other)
  Sender: FDA-Public Use
  Company Number: JP-BAYER-201011545BYL

PATIENT
  Age: 71 Year
  Weight: 65 kg

DRUGS (9)
  1. LOPEMIN [Concomitant]
     Dosage: 3 MG, UNK
     Route: 048
     Dates: end: 20101028
  2. NEXAVAR [Suspect]
     Dosage: 400 MG, UNK
     Dates: start: 20100409, end: 20101028
  3. BUSCOPAN [Concomitant]
     Dosage: 30 MG, UNK
     Route: 048
     Dates: end: 20101028
  4. NEXAVAR [Suspect]
     Indication: HEPATIC NEOPLASM MALIGNANT
     Dosage: 400 MG, BID
     Route: 048
     Dates: start: 20100108, end: 20100408
  5. LOXONIN [Concomitant]
     Dosage: 180 MG, UNK
     Route: 048
     Dates: end: 20101028
  6. BIOFERMIN [Concomitant]
     Dosage: 9 G, UNK
     Route: 048
     Dates: end: 20101028
  7. LASIX M [Concomitant]
     Dosage: 20 MG, UNK
     Route: 048
     Dates: end: 20101028
  8. LANSOPRAZOLE [Concomitant]
     Dosage: 15 MG, UNK
     Route: 048
     Dates: end: 20101028
  9. SAIREI-TO [Concomitant]
     Indication: DIARRHOEA
     Dosage: 9 G, UNK
     Route: 048
     Dates: end: 20101028

REACTIONS (5)
  - PALMAR-PLANTAR ERYTHRODYSAESTHESIA SYNDROME [None]
  - DYSPNOEA [None]
  - MYOCARDIAL INFARCTION [None]
  - HEMIPLEGIA [None]
  - DIARRHOEA [None]
